FAERS Safety Report 6641559-3 (Version None)
Quarter: 2010Q1

REPORT INFORMATION
  Report Type: 
  Country: None (occurrence: None)
  Receive Date: 20100317
  Receipt Date: 20100317
  Transmission Date: 20100710
  Serious: Yes (Congenital Anomaly)
  Sender: FDA-Public Use
  Company Number: None

PATIENT
  Age: 67 Year
  Sex: Male
  Weight: 107 kg

DRUGS (9)
  1. INSULIN GLARGINE [Suspect]
     Indication: TYPE 1 DIABETES MELLITUS
     Dosage: 80 UNITS QHS SQ
     Route: 058
     Dates: start: 20100105
  2. HEPARIN [Concomitant]
  3. CEFEPIME [Concomitant]
  4. LACTOBACILLUS [Concomitant]
  5. LACTULOSE [Concomitant]
  6. METOPROLOL TARTRATE [Concomitant]
  7. NIMODIPINE [Concomitant]
  8. NYSTANTIN [Concomitant]
  9. RANITIDINE [Concomitant]

REACTIONS (3)
  - BLOOD GLUCOSE DECREASED [None]
  - LETHARGY [None]
  - SOMNOLENCE [None]
